FAERS Safety Report 16245333 (Version 1)
Quarter: 2019Q2

REPORT INFORMATION
  Report Type: Spontaneous
  Country: IN (occurrence: IN)
  Receive Date: 20190426
  Receipt Date: 20190426
  Transmission Date: 20190711
  Serious: Yes (Hospitalization, Other)
  Sender: FDA-Public Use
  Company Number: IN-BAUSCH-BL-2019-012123

PATIENT
  Age: 10 Year
  Sex: Male

DRUGS (1)
  1. PREDNISOLONE. [Suspect]
     Active Substance: PREDNISOLONE
     Indication: NEPHROTIC SYNDROME
     Dosage: (APPROXIMATE CUMULATIVE DOSE OF STEROID ADMINISTERED FOR 3 YEARS, 380-460 MG/KG)
     Route: 048

REACTIONS (2)
  - Lipomatosis [Recovering/Resolving]
  - Intentional product misuse [Recovering/Resolving]
